FAERS Safety Report 7973368-7 (Version None)
Quarter: 2011Q4

REPORT INFORMATION
  Report Type: 
  Country: None (occurrence: None)
  Receive Date: 20111213
  Receipt Date: 20110718
  Transmission Date: 20120403
  Serious: No
  Sender: FDA-Public Use
  Company Number: US-AMGEN-USASP2011036382

PATIENT
  Age: 48 Year
  Sex: Female

DRUGS (2)
  1. ARANESP [Suspect]
     Indication: RENAL FAILURE CHRONIC
     Dosage: 40 MUG, UNK
     Dates: end: 20110403
  2. ARANESP [Suspect]
     Dosage: 60 MUG, UNK
     Route: 058
     Dates: start: 20110403

REACTIONS (1)
  - THERAPEUTIC RESPONSE DECREASED [None]
